FAERS Safety Report 8297997-9 (Version None)
Quarter: 2012Q2

REPORT INFORMATION
  Report Type: 
  Country: None (occurrence: None)
  Receive Date: 20120419
  Receipt Date: 20120416
  Transmission Date: 20120825
  Serious: Yes (Hospitalization, Other)
  Sender: FDA-Public Use
  Company Number: US-PFIZER INC-2012056387

PATIENT
  Sex: Female

DRUGS (1)
  1. PROPRANOLOL HCL [Suspect]
     Indication: HYPERTENSION
     Dosage: 125 MG, UNK
     Route: 048

REACTIONS (1)
  - CIRCULATORY COLLAPSE [None]
